FAERS Safety Report 7513591-9 (Version None)
Quarter: 2011Q2

REPORT INFORMATION
  Report Type: 
  Country: None (occurrence: None)
  Receive Date: 20110520
  Receipt Date: 20110510
  Transmission Date: 20111010
  Serious: Yes (Other)
  Sender: FDA-Public Use
  Company Number: 2011BN000042

PATIENT
  Age: 83 Month

DRUGS (2)
  1. MELPHALAN HYDROCHLORIDE [Suspect]
     Indication: RETINOBLASTOMA UNILATERAL
     Dosage: 7.5 MG; ; IART
  2. HEPARIN [Concomitant]

REACTIONS (5)
  - RETINOPATHY [None]
  - RETINAL HAEMORRHAGE [None]
  - RETINAL EXUDATES [None]
  - EYE SWELLING [None]
  - MYOSITIS [None]
